FAERS Safety Report 8062145-7 (Version None)
Quarter: 2012Q1

REPORT INFORMATION
  Report Type: 
  Country: None (occurrence: None)
  Receive Date: 20120120
  Receipt Date: 20120120
  Transmission Date: 20120608
  Serious: Yes (Hospitalization)
  Sender: FDA-Public Use
  Company Number: None

PATIENT
  Age: 39 Year
  Sex: Female

DRUGS (1)
  1. HEPARIN [Suspect]
     Dosage: 5000 UNITS TID SQ
     Route: 058
     Dates: start: 20110908, end: 20110909

REACTIONS (2)
  - TREATMENT FAILURE [None]
  - DEEP VEIN THROMBOSIS [None]
